FAERS Safety Report 7352720-7 (Version None)
Quarter: 2011Q1

REPORT INFORMATION
  Report Type: 
  Country: None (occurrence: None)
  Receive Date: 20110315
  Receipt Date: 20110310
  Transmission Date: 20110831
  Serious: Yes (Other)
  Sender: FDA-Public Use
  Company Number: US-PFIZER INC-2011054460

PATIENT
  Sex: Female

DRUGS (4)
  1. PLAVIX [Concomitant]
     Dosage: 75 MG, 1X/DAY
  2. LIPITOR [Suspect]
     Dosage: 40 MG, 1X/DAY
     Route: 048
     Dates: start: 20071101, end: 20100101
  3. LIPITOR [Suspect]
     Indication: BLOOD CHOLESTEROL INCREASED
     Dosage: 20 MG, 1X/DAY
     Route: 048
     Dates: start: 20100101
  4. COREG [Concomitant]
     Dosage: 40 MG, 1X/DAY

REACTIONS (4)
  - CONSTIPATION [None]
  - CHROMATURIA [None]
  - DYSPNOEA [None]
  - GAIT DISTURBANCE [None]
